FAERS Safety Report 5128165-7 (Version None)
Quarter: 2006Q4

REPORT INFORMATION
  Report Type: 
  Country: None (occurrence: None)
  Receive Date: 20061017
  Receipt Date: 20061004
  Transmission Date: 20070319
  Serious: Yes (Other)
  Sender: FDA-Public Use
  Company Number: PHNU2006DE03330

PATIENT
  Sex: Female

DRUGS (2)
  1. ZOMETA [Suspect]
     Indication: OSTEOPOROSIS
     Dosage: 4 MG, QMO
     Dates: start: 20060601
  2. AREDIA [Suspect]
     Indication: OSTEOPOROSIS
     Dosage: 30 MG, QMO
     Route: 042
     Dates: start: 19930101, end: 20060501

REACTIONS (3)
  - FALL [None]
  - PELVIC FRACTURE [None]
  - PELVIC PAIN [None]
